FAERS Safety Report 6261114-7 (Version None)
Quarter: 2009Q3

REPORT INFORMATION
  Report Type: 
  Country: None (occurrence: None)
  Receive Date: 20090709
  Receipt Date: 20090224
  Transmission Date: 20100115
  Serious: No
  Sender: FDA-Public Use
  Company Number: US-KINGPHARMUSA00001-K200900197

PATIENT
  Sex: Female

DRUGS (3)
  1. LEVOXYL [Suspect]
     Indication: HYPOTHYROIDISM
     Dosage: 75 MCG, QD
     Route: 048
     Dates: start: 20090129
  2. PREMARIN [Concomitant]
     Dosage: 45 MG, QD
     Route: 048
  3. ZOCOR [Concomitant]
     Dosage: 20 MG, QD
     Route: 048

REACTIONS (1)
  - PRURITUS [None]
